FAERS Safety Report 5464847-5 (Version None)
Quarter: 2007Q3

REPORT INFORMATION
  Report Type: 
  Country: None (occurrence: None)
  Receive Date: 20070820
  Receipt Date: 20070531
  Transmission Date: 20080115
  Serious: No
  Sender: FDA-Public Use
  Company Number: TPA2007A00913

PATIENT
  Age: 29 Year
  Sex: Female
  Weight: 84.369 kg

DRUGS (2)
  1. ROZEREM [Suspect]
     Indication: INSOMNIA
     Dosage: 8 MG, ONCE, PER ORAL
     Route: 048
     Dates: start: 20070418, end: 20070419
  2. ULTRAM [Concomitant]

REACTIONS (5)
  - CONFUSIONAL STATE [None]
  - DIZZINESS [None]
  - NAUSEA [None]
  - PALPITATIONS [None]
  - VOMITING [None]
